FAERS Safety Report 22211861 (Version 2)
Quarter: 2023Q2

REPORT INFORMATION
  Report Type: Spontaneous
  Country: FR (occurrence: FR)
  Receive Date: 20230414
  Receipt Date: 20230420
  Transmission Date: 20230721
  Serious: Yes (Hospitalization)
  Sender: FDA-Public Use
  Company Number: None

PATIENT
  Age: 55 Year
  Sex: Female
  Weight: 52 kg

DRUGS (3)
  1. PACLITAXEL [Suspect]
     Active Substance: PACLITAXEL
     Indication: Breast cancer metastatic
     Dosage: 80 MG/M2, WEEKLY
     Route: 042
     Dates: start: 20230109, end: 20230227
  2. LYRICA [Suspect]
     Active Substance: PREGABALIN
     Dosage: 25 MG, BID, MORNING, EVENING (50 MG QD)
     Route: 048
     Dates: start: 2022
  3. PERTUZUMAB\TRASTUZUMAB [Suspect]
     Active Substance: PERTUZUMAB\TRASTUZUMAB
     Indication: Breast cancer metastatic
     Dosage: 1 DF, EVERY 3 WEEKS
     Route: 058
     Dates: start: 20230109

REACTIONS (1)
  - Pemphigoid [Recovering/Resolving]

NARRATIVE: CASE EVENT DATE: 20230220
